FAERS Safety Report 25653057 (Version 1)
Quarter: 2025Q3

REPORT INFORMATION
  Report Type: Spontaneous
  Country: US (occurrence: US)
  Receive Date: 20250807
  Receipt Date: 20250807
  Transmission Date: 20251020
  Serious: No
  Sender: ELI LILLY AND COMPANY
  Company Number: US-ELI_LILLY_AND_COMPANY-US202507030302

PATIENT
  Age: 52 Year
  Sex: Male

DRUGS (10)
  1. LYUMJEV KWIKPEN [Suspect]
     Active Substance: INSULIN LISPRO
     Indication: Diabetes mellitus
     Dosage: 50 U, DAILY
     Route: 058
     Dates: start: 20230112
  2. LYUMJEV KWIKPEN [Suspect]
     Active Substance: INSULIN LISPRO
     Indication: Diabetes mellitus
     Dosage: 50 U, DAILY
     Route: 058
     Dates: start: 20230112
  3. LYUMJEV KWIKPEN [Suspect]
     Active Substance: INSULIN LISPRO
     Indication: Diabetes mellitus
     Dosage: 50 U, DAILY
     Route: 058
     Dates: start: 20230112
  4. LYUMJEV KWIKPEN [Suspect]
     Active Substance: INSULIN LISPRO
     Indication: Diabetes mellitus
     Dosage: 50 U, DAILY
     Route: 058
     Dates: start: 20230112
  5. LYUMJEV KWIKPEN [Suspect]
     Active Substance: INSULIN LISPRO
     Dosage: 50 U, DAILY
     Route: 058
  6. LYUMJEV KWIKPEN [Suspect]
     Active Substance: INSULIN LISPRO
     Dosage: 50 U, DAILY
     Route: 058
  7. LYUMJEV KWIKPEN [Suspect]
     Active Substance: INSULIN LISPRO
     Dosage: 50 U, DAILY
     Route: 058
  8. LYUMJEV KWIKPEN [Suspect]
     Active Substance: INSULIN LISPRO
     Dosage: 50 U, DAILY
     Route: 058
  9. LYUMJEV KWIKPEN [Suspect]
     Active Substance: INSULIN LISPRO
     Dosage: 50 U, DAILY
     Route: 058
  10. LYUMJEV KWIKPEN [Suspect]
     Active Substance: INSULIN LISPRO
     Dosage: 50 U, DAILY
     Route: 058

REACTIONS (3)
  - Blood glucose increased [Unknown]
  - Expired product administered [Unknown]
  - Incorrect dose administered [Unknown]
